FAERS Safety Report 21185190 (Version 1)
Quarter: 2022Q3

REPORT INFORMATION
  Report Type: Spontaneous
  Country: US (occurrence: None)
  Receive Date: 20220808
  Receipt Date: 20220808
  Transmission Date: 20221026
  Serious: No
  Sender: FDA-Public Use
  Company Number: None

PATIENT
  Age: 58 Year
  Sex: Female
  Weight: 78.75 kg

DRUGS (10)
  1. PAXLOVID [Suspect]
     Active Substance: NIRMATRELVIR\RITONAVIR
     Indication: COVID-19
     Dosage: FREQUENCY : TWICE A DAY;?
     Route: 048
     Dates: start: 20220729, end: 20220802
  2. ALVESCO [Concomitant]
     Active Substance: CICLESONIDE
  3. SINGULAIR [Concomitant]
     Active Substance: MONTELUKAST SODIUM
  4. FLONASE [Concomitant]
     Active Substance: FLUTICASONE PROPIONATE
  5. ZYRTEC [Concomitant]
     Active Substance: CETIRIZINE HYDROCHLORIDE
  6. CALCIUM [Concomitant]
     Active Substance: CALCIUM
  7. vitamins D [Concomitant]
  8. ASCORBIC ACID [Concomitant]
     Active Substance: ASCORBIC ACID
  9. vitamins E [Concomitant]
  10. vitamins B12 [Concomitant]

REACTIONS (3)
  - Sneezing [None]
  - Rhinorrhoea [None]
  - COVID-19 [None]

NARRATIVE: CASE EVENT DATE: 20220807
